FAERS Safety Report 25388894 (Version 1)
Quarter: 2025Q2

REPORT INFORMATION
  Report Type: Spontaneous
  Country: GB (occurrence: GB)
  Receive Date: 20250603
  Receipt Date: 20250603
  Transmission Date: 20250716
  Serious: Yes (Other)
  Sender: BAXTER
  Company Number: None

PATIENT
  Age: 43 Year
  Sex: Female

DRUGS (3)
  1. METRONIDAZOLE [Suspect]
     Active Substance: METRONIDAZOLE
     Indication: Pelvic inflammatory disease
     Dosage: 400 MG, BID (400MG TWICE A DAY)
     Route: 065
     Dates: start: 20250520
  2. OFLOXACIN [Concomitant]
     Active Substance: OFLOXACIN
     Indication: Pelvic inflammatory disease
     Route: 065
     Dates: start: 20250520, end: 20250528
  3. DOXYCYCLINE [Concomitant]
     Active Substance: DOXYCYCLINE
     Indication: Pelvic inflammatory disease
     Route: 065
     Dates: start: 20250528

REACTIONS (3)
  - Back pain [Not Recovered/Not Resolved]
  - Abdominal pain upper [Not Recovered/Not Resolved]
  - Arthralgia [Not Recovered/Not Resolved]

NARRATIVE: CASE EVENT DATE: 20250527
